FAERS Safety Report 5821765-8 (Version None)
Quarter: 2008Q3

REPORT INFORMATION
  Report Type: 
  Country: None (occurrence: None)
  Receive Date: 20080717
  Receipt Date: 20080709
  Transmission Date: 20090109
  Serious: Yes (Hospitalization)
  Sender: FDA-Public Use
  Company Number: TCI2008A02950

PATIENT
  Age: 72 Year
  Sex: Female

DRUGS (2)
  1. ACTOS [Suspect]
     Indication: TYPE 2 DIABETES MELLITUS
     Dosage: 15 MG (15 MG, 1 D) PER ORAL
     Route: 048
     Dates: start: 20080528, end: 20080608
  2. OTHER COLD COMBINATION PREPARATIONS [Concomitant]

REACTIONS (2)
  - HYPOGLYCAEMIA [None]
  - MUSCULAR WEAKNESS [None]
